FAERS Safety Report 6651556-X (Version None)
Quarter: 2010Q1

REPORT INFORMATION
  Report Type: 
  Country: None (occurrence: None)
  Receive Date: 20100325
  Receipt Date: 20100316
  Transmission Date: 20100710
  Serious: Yes (Death)
  Sender: FDA-Public Use
  Company Number: B0631062A

PATIENT
  Age: 50 Year
  Sex: Male

DRUGS (9)
  1. KIVEXA [Suspect]
     Indication: HIV INFECTION
     Route: 048
     Dates: start: 20060701
  2. TRUVADA [Suspect]
     Indication: HIV INFECTION
     Route: 065
     Dates: start: 20090101
  3. EFAVIRENZ [Suspect]
     Indication: HIV INFECTION
     Route: 065
     Dates: start: 20060701
  4. ATENOLOL [Concomitant]
     Dosage: 500MG PER DAY
  5. ENALAPRIL MALEATE [Concomitant]
     Dosage: 20MG PER DAY
  6. FENOFIBRATE [Concomitant]
     Dosage: 200MG PER DAY
  7. ROSUVASTATIN [Concomitant]
     Dosage: 20MG PER DAY
  8. VENLAFAXINE [Concomitant]
     Dosage: 75MG PER DAY
  9. INTERFERON [Concomitant]

REACTIONS (6)
  - BLOOD ELECTROLYTES ABNORMAL [None]
  - DYSENTERY [None]
  - RENAL FAILURE ACUTE [None]
  - RENAL IMPAIRMENT [None]
  - SEPSIS [None]
  - SHIGELLA INFECTION [None]
